FAERS Safety Report 22228959 (Version 1)
Quarter: 2023Q2

REPORT INFORMATION
  Report Type: Spontaneous
  Country: US (occurrence: US)
  Receive Date: 20230419
  Receipt Date: 20230419
  Transmission Date: 20230722
  Serious: Yes (Hospitalization, Other)
  Sender: FDA-Public Use
  Company Number: US-FreseniusKabi-FK202304855

PATIENT
  Sex: Male

DRUGS (8)
  1. MICAFUNGIN [Suspect]
     Active Substance: MICAFUNGIN SODIUM
     Indication: Candida infection
  2. SIROLIMUS [Concomitant]
     Active Substance: SIROLIMUS
     Indication: Prophylaxis
  3. SIROLIMUS [Concomitant]
     Active Substance: SIROLIMUS
  4. Valcyte (valganciclovir hydrochloride) [Concomitant]
     Indication: Cytomegalovirus infection
     Route: 048
  5. Valcyte (valganciclovir hydrochloride) [Concomitant]
     Indication: Human herpesvirus 6 infection
  6. GANCICLOVIR [Concomitant]
     Active Substance: GANCICLOVIR
     Indication: Cytomegalovirus infection
     Dosage: (5 MG/KG EVERY 12 H)
     Route: 042
  7. GANCICLOVIR [Concomitant]
     Active Substance: GANCICLOVIR
     Indication: Human herpesvirus 6 infection
  8. LETERMOVIR [Concomitant]
     Active Substance: LETERMOVIR
     Indication: Cytomegalovirus infection
     Dosage: (480 MG DAILY)

REACTIONS (1)
  - Drug-induced liver injury [Unknown]
